FAERS Safety Report 11195404 (Version 4)
Quarter: 2015Q3

REPORT INFORMATION
  Report Type: Report from Study
  Country: US (occurrence: US)
  Receive Date: 20150617
  Receipt Date: 20150910
  Transmission Date: 20151125
  Serious: Yes (Other)
  Sender: FDA-Public Use
  Company Number: US-GILEAD-2015-0158816

PATIENT
  Age: 65 Year
  Sex: Female

DRUGS (4)
  1. AMBRISENTAN [Suspect]
     Active Substance: AMBRISENTAN
     Indication: PULMONARY ARTERIAL HYPERTENSION
     Dosage: 10 MG, QD
     Route: 065
     Dates: start: 20101105
  2. ORENITRAM [Concomitant]
     Active Substance: TREPROSTINIL
  3. CIALIS [Concomitant]
     Active Substance: TADALAFIL
  4. AMBRISENTAN [Suspect]
     Active Substance: AMBRISENTAN
     Indication: CREST SYNDROME
     Dosage: 10 MG, QD
     Route: 065

REACTIONS (4)
  - Joint dislocation [Unknown]
  - Pain in extremity [Unknown]
  - Limb operation [Unknown]
  - Fracture [Unknown]

NARRATIVE: CASE EVENT DATE: 201506
